FAERS Safety Report 16101565 (Version 2)
Quarter: 2021Q4

REPORT INFORMATION
  Report Type: Spontaneous
  Country: US (occurrence: US)
  Receive Date: 20190321
  Receipt Date: 20211029
  Transmission Date: 20220303
  Serious: Yes (Disabling, Other)
  Sender: FDA-Public Use
  Company Number: US-TEVA-2019-US-1028866

PATIENT
  Age: 61 Year
  Sex: Female
  Weight: 76.2 kg

DRUGS (13)
  1. DOCETAXEL [Suspect]
     Active Substance: DOCETAXEL
     Indication: Triple negative breast cancer
     Dosage: 100 MG/M2/DOSE = 193 MG EVERY 3 WEEKS FOR 4 CYCLES
     Route: 042
     Dates: start: 20140314, end: 20140314
  2. DOCETAXEL [Suspect]
     Active Substance: DOCETAXEL
     Indication: Invasive ductal breast carcinoma
     Dosage: 100 MG/M2/DOSE = 193 MG EVERY 3 WEEKS FOR 4 CYCLES
     Route: 042
     Dates: start: 20140403, end: 20140403
  3. DOCETAXEL [Suspect]
     Active Substance: DOCETAXEL
     Dosage: 145 MG EVERY 3 WEEKS FOR 4 CYCLES
     Route: 042
     Dates: end: 20140515
  4. DOCETAXEL [Suspect]
     Active Substance: DOCETAXEL
     Indication: Triple negative breast cancer
     Dosage: 100 MG/M2/DOSE = 193 MG EVERY 3 WEEKS FOR 4 CYCLES
     Route: 042
     Dates: start: 20140314, end: 20140314
  5. DOCETAXEL [Suspect]
     Active Substance: DOCETAXEL
     Indication: Invasive ductal breast carcinoma
     Dosage: 100 MG/M2/DOSE = 193 MG EVERY 3 WEEKS FOR 4 CYCLES
     Route: 042
     Dates: start: 20140403, end: 20140403
  6. DOCETAXEL [Suspect]
     Active Substance: DOCETAXEL
     Dosage: 145 MG EVERY 3 WEEKS FOR 4 CYCLES
     Route: 042
     Dates: end: 20140515
  7. ATORVASTATIN CALCIUM [Concomitant]
     Active Substance: ATORVASTATIN CALCIUM
     Indication: Dyslipidaemia
     Dosage: TAKE ONE HALF TABLET ORALLY EVERY DAY
     Route: 048
     Dates: start: 20120621, end: 20140314
  8. ATORVASTATIN CALCIUM [Concomitant]
     Active Substance: ATORVASTATIN CALCIUM
     Dosage: TAKE ONE HALF TABLET ORALLY EVERY DAY
     Route: 048
  9. LATANOPROST [Concomitant]
     Active Substance: LATANOPROST
     Dosage: .005 PERCENT DAILY; INSTILL ONE DROP IN EACH EYE EVERY NIGHT AT BED TIME
     Route: 047
     Dates: start: 20120601, end: 20120912
  10. LATANOPROST [Concomitant]
     Active Substance: LATANOPROST
     Dosage: .005 PERCENT DAILY; INSTILL ONE DROP IN EACH EYE EVERY NIGHT AT BED TIME
     Route: 047
     Dates: start: 20121211, end: 20140314
  11. LATANOPROST [Concomitant]
     Active Substance: LATANOPROST
     Dosage: .005 PERCENT DAILY; INSTILL ONE DROP IN EACH EYE EVERY NIGHT AT BED TIME
     Route: 047
  12. Triamterene/ Hydrochlorothiazide [Concomitant]
     Dosage: HYDROCHLOROTHIAZIDE 50 MG/ TRIAMTERENE 75 MG TAKE ONE-HALF TABLET ORALLY
     Route: 048
     Dates: start: 20120606, end: 20140314
  13. Triamterene/ Hydrochlorothiazide [Concomitant]
     Dosage: HYDROCHLOROTHIAZIDE 50 MG/ TRIAMTERENE 75 MG TAKE ONE-HALF TABLET ORALLY
     Route: 048

REACTIONS (11)
  - Alopecia areata [Not Recovered/Not Resolved]
  - Madarosis [Not Recovered/Not Resolved]
  - Neuropathy peripheral [Unknown]
  - Hair colour changes [Not Recovered/Not Resolved]
  - Hair texture abnormal [Not Recovered/Not Resolved]
  - Lumbar spinal stenosis [Unknown]
  - Skin exfoliation [Recovering/Resolving]
  - Bone pain [Unknown]
  - Eye irritation [Unknown]
  - Lumbar radiculopathy [Unknown]
  - Intervertebral disc degeneration [Unknown]

NARRATIVE: CASE EVENT DATE: 20140401
